FAERS Safety Report 23048494 (Version 1)
Quarter: 2023Q4

REPORT INFORMATION
  Report Type: Spontaneous
  Country: US (occurrence: US)
  Receive Date: 20231010
  Receipt Date: 20231010
  Transmission Date: 20240110
  Serious: No
  Sender: FDA-Public Use
  Company Number: US-UNITED THERAPEUTICS-UNT-2023-023995

PATIENT
  Sex: Male

DRUGS (4)
  1. REMODULIN [Suspect]
     Active Substance: TREPROSTINIL
     Indication: Pulmonary arterial hypertension
     Dosage: 0.0093 ?G/KG, CONTINUING
     Route: 058
     Dates: start: 202308
  2. REMODULIN [Suspect]
     Active Substance: TREPROSTINIL
     Dosage: 0.01510 ?G/KG, CONTINUING
     Route: 058
     Dates: start: 202308
  3. REMODULIN [Suspect]
     Active Substance: TREPROSTINIL
     Dosage: 0.0206 ?G/KG, CONTINUING
     Route: 058
     Dates: start: 2023
  4. REMODULIN [Suspect]
     Active Substance: TREPROSTINIL
     Dosage: UNK, CONTINUING
     Route: 058
     Dates: start: 202308

REACTIONS (7)
  - Infusion site pain [Unknown]
  - Infusion site erythema [Unknown]
  - Infusion site swelling [Unknown]
  - Oxygen saturation decreased [Unknown]
  - Feeling abnormal [Recovering/Resolving]
  - COVID-19 [Recovering/Resolving]
  - Device infusion issue [Unknown]

NARRATIVE: CASE EVENT DATE: 20230101
